FAERS Safety Report 4963029-0 (Version None)
Quarter: 2006Q2

REPORT INFORMATION
  Report Type: 
  Country: None (occurrence: None)
  Receive Date: 20060405
  Receipt Date: 20060328
  Transmission Date: 20061013
  Serious: Yes (Hospitalization, Disabling, Other)
  Sender: FDA-Public Use
  Company Number: TR-AVENTIS-200613116GDDC

PATIENT
  Age: 40 Year
  Sex: Male
  Weight: 72 kg

DRUGS (5)
  1. TAXOTERE [Suspect]
     Indication: NASOPHARYNGEAL CANCER
     Dosage: DOSE: 75 MG/M2
     Route: 042
     Dates: start: 20050418
  2. CISPLATIN [Suspect]
     Indication: NASOPHARYNGEAL CANCER
     Dosage: DOSE: 75 MG/M2 X3
     Route: 042
     Dates: start: 20050418
  3. RADIOTHERAPY [Suspect]
     Indication: NASOPHARYNGEAL CANCER
  4. AMARYL [Concomitant]
     Indication: DIABETES MELLITUS
     Dosage: DOSE: 1 MG
     Route: 048
  5. GLIBEN [Concomitant]
     Indication: DIABETES MELLITUS
     Dosage: DOSE: 5 MG
     Route: 048

REACTIONS (3)
  - NUCLEAR MAGNETIC RESONANCE IMAGING ABNORMAL [None]
  - QUADRIPARESIS [None]
  - RADIATION MYELOPATHY [None]
